FAERS Safety Report 10172378 (Version 1)
Quarter: 2014Q2

REPORT INFORMATION
  Report Type: Spontaneous
  Country: US (occurrence: US)
  Receive Date: 20140515
  Receipt Date: 20140515
  Transmission Date: 20141212
  Serious: No
  Sender: FDA-Public Use
  Company Number: US-ASTRAZENECA-2013SE76740

PATIENT
  Age: 889 Month
  Sex: Male
  Weight: 81.6 kg

DRUGS (17)
  1. ZOLADEX [Suspect]
     Indication: PROSTATE CANCER
     Route: 058
     Dates: start: 20131007
  2. LISINOPRIL [Suspect]
     Indication: HYPERTENSION
     Route: 048
  3. AVADART [Concomitant]
     Indication: BENIGN PROSTATIC HYPERPLASIA
     Route: 048
  4. FLOMAX [Concomitant]
     Indication: BENIGN PROSTATIC HYPERPLASIA
     Route: 048
  5. TRAZADONE [Concomitant]
     Indication: SLEEP DISORDER
     Route: 048
  6. TRAZADONE [Concomitant]
     Indication: ANXIETY
     Route: 048
  7. TRAZADONE [Concomitant]
     Indication: DEPRESSION
     Route: 048
  8. WHEY PROTEIN POWDER [Concomitant]
     Indication: SUPPLEMENTATION THERAPY
     Dosage: 1 SCOOP DAILY
     Route: 048
  9. MAGNESIUM CARBINATE [Concomitant]
     Indication: CONSTIPATION
     Route: 048
  10. CALCIUM CIIRATE [Concomitant]
     Indication: MINERAL SUPPLEMENTATION
     Route: 048
  11. CALCIUM CIIRATE [Concomitant]
     Indication: MUSCLE SPASMS
     Route: 048
  12. ASPIRIN [Concomitant]
     Route: 048
  13. MELATONIN [Concomitant]
     Indication: SLEEP DISORDER
     Route: 048
  14. ZOLOFT [Concomitant]
  15. PEPCID [Concomitant]
  16. DOMPERIDONE [Concomitant]
  17. LIBRIUM [Concomitant]

REACTIONS (6)
  - Terminal insomnia [Unknown]
  - Nausea [Unknown]
  - Sleep disorder [Unknown]
  - Abdominal discomfort [Unknown]
  - Abdominal discomfort [Unknown]
  - Anxiety [Unknown]
